FAERS Safety Report 6496283-7 (Version None)
Quarter: 2009Q4

REPORT INFORMATION
  Report Type: 
  Country: None (occurrence: None)
  Receive Date: 20091209
  Receipt Date: 20091124
  Transmission Date: 20100525
  Serious: Yes (Life-Threatening)
  Sender: FDA-Public Use
  Company Number: DSA_34083_2009

PATIENT
  Age: 61 Year
  Sex: Male

DRUGS (2)
  1. DILTIAZEM HYDROCHLORIDE [Suspect]
     Indication: ARRHYTHMIA
     Dosage: (200 MG QD ORAL)
     Route: 048
     Dates: start: 20090505, end: 20090507
  2. TENORMIN [Suspect]
     Indication: TACHYCARDIA
     Dosage: (100 MG 1X ORAL)
     Route: 048
     Dates: start: 20090507, end: 20090507

REACTIONS (13)
  - ACUTE PULMONARY OEDEMA [None]
  - ATRIAL FIBRILLATION [None]
  - CARDIAC FAILURE ACUTE [None]
  - CARDIOGENIC SHOCK [None]
  - CHOLESTASIS [None]
  - CYTOLYTIC HEPATITIS [None]
  - ELECTROLYTE IMBALANCE [None]
  - HAEMODIALYSIS [None]
  - HYPERLIPASAEMIA [None]
  - MALNUTRITION [None]
  - MYOCARDIAL ISCHAEMIA [None]
  - RENAL FAILURE ACUTE [None]
  - VENTRICULAR DYSFUNCTION [None]
